FAERS Safety Report 16964247 (Version 1)
Quarter: 2019Q4

REPORT INFORMATION
  Report Type: Spontaneous
  Country: US (occurrence: US)
  Receive Date: 20191025
  Receipt Date: 20191025
  Transmission Date: 20200122
  Serious: Yes (Other)
  Sender: FDA-Public Use
  Company Number: None

PATIENT
  Age: 61 Year
  Sex: Female
  Weight: 52.65 kg

DRUGS (1)
  1. IBRANCE [Suspect]
     Active Substance: PALBOCICLIB
     Indication: BREAST CANCER
     Dates: start: 20191002, end: 20191022

REACTIONS (4)
  - Neutropenia [None]
  - Liver function test increased [None]
  - Thrombocytopenia [None]
  - Blood bilirubin increased [None]

NARRATIVE: CASE EVENT DATE: 20191022
